FAERS Safety Report 9540686 (Version 2)
Quarter: 2013Q4

REPORT INFORMATION
  Report Type: Spontaneous
  Country: DK (occurrence: FR)
  Receive Date: 20130920
  Receipt Date: 20131002
  Transmission Date: 20140711
  Serious: Yes (Hospitalization)
  Sender: FDA-Public Use
  Company Number: FR-FRI-1000048971

PATIENT
  Age: 83 Year
  Sex: Male

DRUGS (9)
  1. CITALOPRAM [Suspect]
     Dosage: 2 DF
     Route: 048
  2. MICROPAKINE [Suspect]
     Indication: ABNORMAL BEHAVIOUR
     Dosage: 3 DF
     Route: 048
     Dates: start: 201109
  3. MICROPAKINE [Suspect]
     Dosage: 2 DF
     Route: 048
  4. LOXAPAC [Suspect]
     Indication: ABNORMAL BEHAVIOUR
     Route: 048
     Dates: end: 20120726
  5. SERESTA [Suspect]
     Indication: ABNORMAL BEHAVIOUR
     Dosage: 3 DF
     Route: 048
  6. HEMIGOXINE NATIVELLE [Concomitant]
  7. TEMERIT [Concomitant]
  8. OPHTALMOLOGICALS [Concomitant]
  9. PREVISCAN [Concomitant]

REACTIONS (3)
  - Disturbance in attention [Recovered/Resolved]
  - Somnolence [Recovered/Resolved]
  - Hyperammonaemia [Recovered/Resolved]
